FAERS Safety Report 12632240 (Version 2)
Quarter: 2016Q3

REPORT INFORMATION
  Report Type: Spontaneous
  Country: US (occurrence: US)
  Receive Date: 20160808
  Receipt Date: 20160808
  Transmission Date: 20161109
  Serious: No
  Sender: FDA-Public Use
  Company Number: US-BEH-2016062229

PATIENT
  Sex: Female
  Weight: 67 kg

DRUGS (12)
  1. CEPHALEXIN. [Concomitant]
     Active Substance: CEPHALEXIN
  2. ASPIRIN. [Concomitant]
     Active Substance: ASPIRIN
  3. ACETAMINOPHEN. [Concomitant]
     Active Substance: ACETAMINOPHEN
  4. ZYRTEC [Concomitant]
     Active Substance: CETIRIZINE HYDROCHLORIDE
  5. PANTOPRAZOLE [Concomitant]
     Active Substance: PANTOPRAZOLE SODIUM
  6. HIZENTRA [Suspect]
     Active Substance: HUMAN IMMUNOGLOBULIN G
     Indication: IMMUNODEFICIENCY COMMON VARIABLE
     Route: 058
     Dates: start: 20130705
  7. EPIPEN [Concomitant]
     Active Substance: EPINEPHRINE
  8. FLECAINIDE [Concomitant]
     Active Substance: FLECAINIDE
  9. POTASSIUM [Concomitant]
     Active Substance: POTASSIUM
  10. NADOLOL. [Concomitant]
     Active Substance: NADOLOL
  11. TRIAMTERENE. [Concomitant]
     Active Substance: TRIAMTERENE
  12. ALBUTEROL. [Concomitant]
     Active Substance: ALBUTEROL

REACTIONS (1)
  - Sinusitis [Unknown]
